FAERS Safety Report 10204764 (Version 2)
Quarter: 2014Q2

REPORT INFORMATION
  Report Type: Spontaneous
  Country: DE (occurrence: DE)
  Receive Date: 20140529
  Receipt Date: 20140618
  Transmission Date: 20141212
  Serious: Yes (Hospitalization)
  Sender: FDA-Public Use
  Company Number: DE-JNJFOC-20140514748

PATIENT
  Age: 60 Year
  Sex: Male
  Weight: 100 kg

DRUGS (6)
  1. SIMPONI [Suspect]
     Indication: ANKYLOSING SPONDYLITIS
     Route: 058
     Dates: start: 20110317, end: 20140521
  2. METHOTREXATE [Concomitant]
     Indication: ANKYLOSING SPONDYLITIS
     Route: 065
     Dates: start: 200906
  3. FOLSAURE [Concomitant]
     Indication: ANKYLOSING SPONDYLITIS
     Route: 065
     Dates: start: 200906
  4. ENALAGAMMA [Concomitant]
     Indication: HYPERTENSION
     Route: 065
  5. CITALOPRAM [Concomitant]
     Indication: DEPRESSION
     Route: 065
  6. ARCOXIA [Concomitant]
     Indication: ANKYLOSING SPONDYLITIS
     Dosage: AS NEEDED
     Route: 065
     Dates: start: 2007

REACTIONS (1)
  - Prostate cancer [Not Recovered/Not Resolved]
